FAERS Safety Report 25956380 (Version 1)
Quarter: 2025Q4

REPORT INFORMATION
  Report Type: Spontaneous
  Country: US (occurrence: US)
  Receive Date: 20251024
  Receipt Date: 20251024
  Transmission Date: 20260117
  Serious: Yes (Hospitalization, Other)
  Sender: ALEXION PHARMACEUTICALS
  Company Number: US-AstraZeneca-CH-00977122AM

PATIENT
  Age: 39 Year
  Sex: Female
  Weight: 64 kg

DRUGS (1)
  1. ASFOTASE ALFA [Suspect]
     Active Substance: ASFOTASE ALFA
     Indication: Hypophosphatasia
     Dosage: 1 MILLILITRE PER KILOGRAM, QD 6 WEEKS
     Dates: start: 202409, end: 202509

REACTIONS (2)
  - Hepatomegaly [Unknown]
  - Pancreatitis [Unknown]

NARRATIVE: CASE EVENT DATE: 20250901
